FAERS Safety Report 5051183-4 (Version None)
Quarter: 2006Q3

REPORT INFORMATION
  Report Type: 
  Country: None (occurrence: None)
  Receive Date: 20060714
  Receipt Date: 20060705
  Transmission Date: 20061208
  Serious: Yes (Hospitalization)
  Sender: FDA-Public Use
  Company Number: US-ROCHE-454023

PATIENT
  Age: 75 Year
  Sex: Female
  Weight: 61.2 kg

DRUGS (2)
  1. XELODA [Suspect]
     Dosage: GIVEN EVERY TWELVE HOURS ON DAYS ONE TO FIVE (MONDAY-FRIDAY) FOR 5.5 WEEKS ON RADIATION THERAPY DAY+
     Route: 048
     Dates: start: 20060110, end: 20060214
  2. AVASTIN [Suspect]
     Dosage: GIVEN OVER 30-90 MINUTES ON DAYS ONE, FIFTEEN AND TWENTY-NINE OF CHEMORADIATION DAYS.
     Route: 042
     Dates: start: 20060110, end: 20060214

REACTIONS (3)
  - DISEASE PROGRESSION [None]
  - OESOPHAGITIS [None]
  - WEIGHT DECREASED [None]
